FAERS Safety Report 5524604-8 (Version None)
Quarter: 2007Q4

REPORT INFORMATION
  Report Type: 
  Country: None (occurrence: None)
  Receive Date: 20071123
  Receipt Date: 20071116
  Transmission Date: 20080405
  Serious: Yes (Hospitalization)
  Sender: FDA-Public Use
  Company Number: JP-BAYER-200611259BYL

PATIENT
  Age: 77 Year
  Sex: Male
  Weight: 63 kg

DRUGS (11)
  1. ASPIRIN [Suspect]
     Indication: MYOCARDIAL INFARCTION
     Dosage: TOTAL DAILY DOSE: 100 MG  UNIT DOSE: 100 MG
     Route: 048
     Dates: end: 20061121
  2. WARFARIN SODIUM [Concomitant]
     Route: 048
  3. LASIX [Concomitant]
     Route: 048
  4. DIART [Concomitant]
     Route: 048
  5. FAMOTIDINE [Concomitant]
     Route: 048
  6. BLOPRESS [Concomitant]
     Route: 048
  7. GLIMICRON [Concomitant]
     Route: 048
  8. ARTIST [Concomitant]
     Route: 048
  9. ENALAPRIL MALEATE [Concomitant]
     Route: 048
  10. ZYLORIC [Concomitant]
     Route: 048
  11. MAGMITT [Concomitant]
     Route: 048

REACTIONS (4)
  - ABDOMINAL PAIN [None]
  - CONSTIPATION [None]
  - LARGE INTESTINAL ULCER HAEMORRHAGE [None]
  - MELAENA [None]
